FAERS Safety Report 9448151 (Version 3)
Quarter: 2013Q4

REPORT INFORMATION
  Report Type: Spontaneous
  Country: PL (occurrence: None)
  Receive Date: 20130806
  Receipt Date: 20131021
  Transmission Date: 20140711
  Serious: Yes (Hospitalization)
  Sender: FDA-Public Use
  Company Number: 2013000180

PATIENT
  Age: 66 Year
  Sex: Female
  Weight: 63 kg

DRUGS (10)
  1. ACEON [Suspect]
     Indication: HYPERTENSION
     Route: 048
     Dates: start: 20130424, end: 20130426
  2. MIXTARD [Suspect]
     Indication: DIABETES MELLITUS
     Dosage: 16 UNITS IN THE MORNING AND 6 UNITS IN THE EVENING
     Route: 058
     Dates: start: 20130424, end: 20130523
  3. DIAPREL 30 OR 80 NOS (GLICLAZIDE) TABLET [Concomitant]
  4. AMLODIPINE MESITATE (AMIODIPINE MESILATE) [Concomitant]
  5. ENARENAL (ENALAPRIL MALEATE) [Concomitant]
  6. ANALGESIC [Concomitant]
  7. CAVINTON (VINPOCETINE) [Concomitant]
  8. RAMIPRIL (RAMIPRIL) [Concomitant]
  9. CAPTOPRIL (CAPTOPRIL) (CAPTOPRIL) [Concomitant]
  10. NICERGOLINE (NICERGOLINE) [Concomitant]

REACTIONS (15)
  - Blood glucose increased [None]
  - Cerebrovascular accident [None]
  - Erythema [None]
  - Feeling cold [None]
  - Paresis [None]
  - Blood pressure increased [None]
  - Drug ineffective [None]
  - Renal pain [None]
  - Vasculitis [None]
  - Arthralgia [None]
  - Pruritus [None]
  - Gait disturbance [None]
  - Muscle atrophy [None]
  - Weight decreased [None]
  - Erythema [None]
